FAERS Safety Report 6702272-7 (Version None)
Quarter: 2010Q2

REPORT INFORMATION
  Report Type: 
  Country: None (occurrence: None)
  Receive Date: 20100429
  Receipt Date: 20100318
  Transmission Date: 20101027
  Serious: Yes (Hospitalization, Other)
  Sender: FDA-Public Use
  Company Number: PHHY2010US24644

PATIENT
  Age: 9 Year
  Sex: Male

DRUGS (3)
  1. ELIDEL [Suspect]
     Indication: ECZEMA
     Dosage: UNK
     Dates: start: 20061230
  2. PREDNISONE [Concomitant]
  3. ANTIBIOTICS [Concomitant]

REACTIONS (5)
  - APPLICATION SITE INFECTION [None]
  - APPLICATION SITE NODULE [None]
  - APPLICATION SITE PAIN [None]
  - APPLICATION SITE URTICARIA [None]
  - GAIT DISTURBANCE [None]
